FAERS Safety Report 8218068-3 (Version None)
Quarter: 2012Q1

REPORT INFORMATION
  Report Type: 
  Country: None (occurrence: None)
  Receive Date: 20120319
  Receipt Date: 20120314
  Transmission Date: 20120608
  Serious: Yes (Other)
  Sender: FDA-Public Use
  Company Number: US-PFIZER INC-2012068484

PATIENT

DRUGS (9)
  1. NORVASC [Suspect]
     Dosage: 5 MG, DAILY
  2. PLAVIX [Concomitant]
     Dosage: UNK
  3. CALCIUM [Concomitant]
     Dosage: UNK
  4. METOPROLOL [Concomitant]
     Dosage: UNK
  5. LIPITOR [Suspect]
     Dosage: 40MG DAILY
  6. AMITRIPTYLINE [Concomitant]
     Dosage: UNK
  7. VITAMIN B-12 [Concomitant]
     Dosage: UNK
  8. LISINOPRIL [Concomitant]
     Dosage: UNK
  9. FISH OIL [Concomitant]
     Dosage: UNK

REACTIONS (1)
  - CORONARY ARTERY DISEASE [None]
